FAERS Safety Report 11133525 (Version 3)
Quarter: 2015Q3

REPORT INFORMATION
  Report Type: Spontaneous
  Country: US (occurrence: US)
  Receive Date: 20150523
  Receipt Date: 20150707
  Transmission Date: 20151125
  Serious: Yes (Death, Hospitalization, Other)
  Sender: FDA-Public Use
  Company Number: US-AMGEN-USASP2015048935

PATIENT
  Age: 71 Year
  Sex: Female
  Weight: 54.88 kg

DRUGS (3)
  1. PROLIA [Suspect]
     Active Substance: DENOSUMAB
     Indication: OSTEOPOROSIS POSTMENOPAUSAL
     Dosage: 60 MG, Q6MO
     Route: 058
     Dates: start: 20130716
  2. PROLIA [Suspect]
     Active Substance: DENOSUMAB
     Dosage: 60 MG, Q6MO
     Route: 058
  3. PROLIA [Suspect]
     Active Substance: DENOSUMAB
     Dosage: 60 MG, Q6MO
     Route: 058

REACTIONS (9)
  - Interstitial lung disease [Unknown]
  - Pleural effusion [Unknown]
  - Blood sodium decreased [Unknown]
  - Pancreatic insufficiency [Unknown]
  - Acute respiratory failure [Fatal]
  - Lung carcinoma cell type unspecified stage IV [Unknown]
  - Non-small cell lung cancer metastatic [Unknown]
  - Arterial disorder [Unknown]
  - Depression [Unknown]

NARRATIVE: CASE EVENT DATE: 201412
